FAERS Safety Report 5154540-0 (Version None)
Quarter: 2006Q4

REPORT INFORMATION
  Report Type: 
  Country: None (occurrence: None)
  Receive Date: 20061114
  Receipt Date: 20061030
  Transmission Date: 20070319
  Serious: Yes (Hospitalization)
  Sender: FDA-Public Use
  Company Number: 2006132957

PATIENT
  Age: 52 Year
  Sex: Male
  Weight: 76 kg

DRUGS (4)
  1. SUTENT [Suspect]
     Indication: RENAL CANCER METASTATIC
     Dosage: 37.5 MG (37.5 MG, 1 IN 1 D), ORAL
     Route: 048
     Dates: start: 20060918, end: 20061015
  2. OMEPRAZOLE [Concomitant]
  3. GLUCOPHAGE [Concomitant]
  4. ACTOS [Concomitant]

REACTIONS (5)
  - CHEST PAIN [None]
  - DISEASE PROGRESSION [None]
  - DYSPNOEA [None]
  - LUNG DISORDER [None]
  - PO2 DECREASED [None]
